FAERS Safety Report 8121743-2 (Version None)
Quarter: 2012Q1

REPORT INFORMATION
  Report Type: 
  Country: None (occurrence: None)
  Receive Date: 20120207
  Receipt Date: 20120207
  Transmission Date: 20120608
  Serious: Yes (Life-Threatening, Hospitalization, Disabling)
  Sender: FDA-Public Use
  Company Number: None

PATIENT
  Sex: Female
  Weight: 99.3377 kg

DRUGS (1)
  1. ABILIFY [Suspect]
     Indication: DEPRESSION
     Dosage: 3 PER DAY 3 PER DAY ; 60 MG DAY NOT SURE MAYBE LONGER
     Dates: start: 20100201

REACTIONS (9)
  - SWELLING [None]
  - DYSKINESIA [None]
  - FEELING ABNORMAL [None]
  - HEADACHE [None]
  - PARKINSON'S DISEASE [None]
  - BONE PAIN [None]
  - VISUAL ACUITY REDUCED [None]
  - EAR PAIN [None]
  - SPEECH DISORDER [None]
